FAERS Safety Report 4599374-0 (Version None)
Quarter: 2005Q1

REPORT INFORMATION
  Report Type: 
  Country: None (occurrence: None)
  Receive Date: 20050302
  Receipt Date: 20040301
  Transmission Date: 20050727
  Serious: Yes (Hospitalization)
  Sender: FDA-Public Use
  Company Number: 7590

PATIENT
  Age: 50 Year

DRUGS (2)
  1. METHOTREXATE [Suspect]
     Indication: MENINGITIS
     Dosage: 10 MG 2/WK
     Dates: start: 20040127, end: 20040219
  2. METHOTREXATE [Suspect]
     Indication: NEOPLASM
     Dosage: 10 MG 2/WK
     Dates: start: 20040127, end: 20040219

REACTIONS (2)
  - ENCEPHALOPATHY [None]
  - MYELOPATHY [None]
